FAERS Safety Report 4776403-2 (Version None)
Quarter: 2005Q3

REPORT INFORMATION
  Report Type: 
  Country: None (occurrence: None)
  Receive Date: 20050921
  Receipt Date: 20050909
  Transmission Date: 20060218
  Serious: Yes (Hospitalization)
  Sender: FDA-Public Use
  Company Number: EM2005-0454

PATIENT
  Age: 34 Year
  Sex: Male

DRUGS (7)
  1. PROLEUKIN [Suspect]
     Indication: HIV INFECTION
     Dosage: SEE IMAGE
     Route: 058
     Dates: start: 20040607, end: 20040611
  2. PROLEUKIN [Suspect]
     Indication: HIV INFECTION
     Dosage: SEE IMAGE
     Route: 058
     Dates: start: 20040802, end: 20040806
  3. PROLEUKIN [Suspect]
     Indication: HIV INFECTION
     Dosage: SEE IMAGE
     Route: 058
     Dates: start: 20040929, end: 20041003
  4. PROLEUKIN [Suspect]
     Indication: HIV INFECTION
     Dosage: SEE IMAGE
     Route: 058
     Dates: start: 20041122, end: 20041126
  5. PROLEUKIN [Suspect]
  6. PROLEUKIN [Suspect]
  7. PROLEUKIN [Suspect]

REACTIONS (3)
  - ASPERGILLOSIS [None]
  - CANDIDIASIS [None]
  - PNEUMOCYSTIS JIROVECI PNEUMONIA [None]
